FAERS Safety Report 7454916-2 (Version None)
Quarter: 2011Q2

REPORT INFORMATION
  Report Type: 
  Country: None (occurrence: None)
  Receive Date: 20110503
  Receipt Date: 20101223
  Transmission Date: 20111010
  Serious: Yes (Hospitalization)
  Sender: FDA-Public Use
  Company Number: US-BAYER-201032465NA

PATIENT
  Age: 36 Year
  Sex: Female
  Weight: 74.83 kg

DRUGS (5)
  1. SYNTHROID [Concomitant]
     Dosage: UNK UNK, QD
  2. CELEXA [Concomitant]
  3. YASMIN [Suspect]
     Indication: OVARIAN CYST
     Dosage: UNK UNK, UNK
     Route: 048
     Dates: start: 20070901, end: 20071001
  4. BENADRYL N [Concomitant]
  5. ZOFRAN [Concomitant]

REACTIONS (1)
  - PULMONARY EMBOLISM [None]
